FAERS Safety Report 12073998 (Version 1)
Quarter: 2016Q1

REPORT INFORMATION
  Report Type: Spontaneous
  Country: DK (occurrence: DK)
  Receive Date: 20160212
  Receipt Date: 20160212
  Transmission Date: 20160526
  Serious: Yes (Death, Other)
  Sender: FDA-Public Use
  Company Number: DK-FRESENIUS KABI-FK201600638

PATIENT
  Age: 77 Year
  Sex: Female

DRUGS (7)
  1. CLARITHROMYCIN. [Concomitant]
     Active Substance: CLARITHROMYCIN
     Indication: PNEUMONIA
  2. SOLU-MEDROL [Concomitant]
     Active Substance: METHYLPREDNISOLONE SODIUM SUCCINATE
     Indication: CHRONIC OBSTRUCTIVE PULMONARY DISEASE
  3. PREDNISOLON [Concomitant]
     Active Substance: PREDNISOLONE
     Indication: CHRONIC OBSTRUCTIVE PULMONARY DISEASE
  4. FURIX [Concomitant]
     Active Substance: FUROSEMIDE
     Dates: end: 20150319
  5. AMLODIPIN [Concomitant]
     Active Substance: AMLODIPINE BESYLATE
     Dates: end: 20150219
  6. ACE INHIBITOR NOS [Concomitant]
     Active Substance: UNSPECIFIED INGREDIENT
     Dates: end: 20150319
  7. CEFUROXIM FRESENIUS [Suspect]
     Active Substance: CEFUROXIME
     Indication: PNEUMONIA
     Route: 042
     Dates: start: 20150317

REACTIONS (5)
  - Lethargy [Unknown]
  - Blood creatinine increased [Unknown]
  - General physical health deterioration [Unknown]
  - Dialysis [Unknown]
  - Renal failure [Fatal]

NARRATIVE: CASE EVENT DATE: 20150319
